FAERS Safety Report 19413936 (Version 1)
Quarter: 2021Q2

REPORT INFORMATION
  Report Type: Spontaneous
  Country: IT (occurrence: IT)
  Receive Date: 20210614
  Receipt Date: 20210614
  Transmission Date: 20210717
  Serious: Yes (Other)
  Sender: FDA-Public Use
  Company Number: IT-JNJFOC-20210615879

PATIENT
  Age: 15 Year
  Sex: Male

DRUGS (1)
  1. RISPERDAL [Suspect]
     Active Substance: RISPERIDONE
     Indication: PRODUCT USED FOR UNKNOWN INDICATION
     Dosage: 20 ML
     Route: 048

REACTIONS (6)
  - Tachycardia [Unknown]
  - Dyskinesia [Unknown]
  - Dystonia [Unknown]
  - Accidental exposure to product [Unknown]
  - Accidental overdose [Unknown]
  - Opisthotonus [Unknown]
